FAERS Safety Report 6404039-6 (Version None)
Quarter: 2009Q4

REPORT INFORMATION
  Report Type: 
  Country: None (occurrence: None)
  Receive Date: 20091016
  Receipt Date: 20091008
  Transmission Date: 20100525
  Serious: No
  Sender: FDA-Public Use
  Company Number: GB-AVENTIS-200921476GDDC

PATIENT
  Age: 18 Year
  Sex: Female

DRUGS (6)
  1. ARAVA [Suspect]
     Indication: RHEUMATOID ARTHRITIS
  2. METHOTREXATE [Suspect]
  3. CILEST [Suspect]
     Dosage: DOSE: UNK
  4. HYDROXYCHLOROQUINE [Suspect]
  5. FOLIC ACID [Suspect]
  6. IBUPROFEN [Suspect]
     Dosage: DOSE: UNK

REACTIONS (1)
  - DRUG EXPOSURE DURING PREGNANCY [None]
